FAERS Safety Report 18784690 (Version 1)
Quarter: 2021Q1

REPORT INFORMATION
  Report Type: Spontaneous
  Country: IT (occurrence: IT)
  Receive Date: 20210125
  Receipt Date: 20210125
  Transmission Date: 20210419
  Serious: Yes (Other)
  Sender: FDA-Public Use
  Company Number: IT-TEVA-2021-IT-1871439

PATIENT
  Age: 51 Year
  Sex: Female

DRUGS (2)
  1. CARBOPLATINO TEVA [Suspect]
     Active Substance: CARBOPLATIN
     Indication: SARCOMATOID CARCINOMA
     Route: 042
     Dates: start: 20200826, end: 20201202
  2. GEMCITABINE. [Concomitant]
     Active Substance: GEMCITABINE
     Indication: SARCOMATOID CARCINOMA
     Dosage: 1000 MG
     Route: 042
     Dates: start: 20180920, end: 20201202

REACTIONS (4)
  - Asthenia [Recovered/Resolved]
  - Pruritus [Recovered/Resolved]
  - Erythema [Recovered/Resolved]
  - Head discomfort [Recovered/Resolved]

NARRATIVE: CASE EVENT DATE: 20201008
